FAERS Safety Report 21556843 (Version 1)
Quarter: 2022Q4

REPORT INFORMATION
  Report Type: Spontaneous
  Country: US (occurrence: None)
  Receive Date: 20221103
  Receipt Date: 20221103
  Transmission Date: 20230112
  Serious: Yes (Death)
  Sender: FDA-Public Use
  Company Number: None

PATIENT
  Age: 65 Year
  Sex: Female
  Weight: 42.64 kg

DRUGS (11)
  1. CAPECITABINE [Suspect]
     Active Substance: CAPECITABINE
     Indication: Rectal cancer
     Dosage: 1500MG TWICE A DAY ORAL?
     Route: 048
     Dates: end: 20221011
  2. CAPECITABINE [Suspect]
     Active Substance: CAPECITABINE
     Indication: Rectal cancer
     Dosage: 150 MG TWICE A DAY ORAL
     Dates: end: 20221011
  3. ACETAMINOPOHEN [Concomitant]
  4. CEFTRIAXONE SODIUM [Concomitant]
  5. HEPARIN [Concomitant]
  6. LACTULOSE [Concomitant]
  7. LEXAPRO [Concomitant]
     Active Substance: ESCITALOPRAM OXALATE
  8. LOVENOX [Concomitant]
  9. NORMAL SALINE [Concomitant]
  10. OXYCODONE [Concomitant]
  11. XANAX [Concomitant]

REACTIONS (1)
  - Death [None]
